FAERS Safety Report 8774236 (Version 1)
Quarter: 2012Q4

REPORT INFORMATION
  Report Type: 
  Country: GB (occurrence: US)
  Receive Date: 20120907
  Receipt Date: 20120907
  Transmission Date: 20130627
  Serious: Yes (Other)
  Sender: FDA-Public Use
  Company Number: US-B.I. PHARMACEUTICALS,INC./RIDGEFIELD-2012-BP-21299BP

PATIENT
  Age: 67 Year
  Sex: Female
  Weight: 64 kg

DRUGS (1)
  1. MELOXICAM [Suspect]
     Indication: RHEUMATOID ARTHRITIS
     Dosage: 15 mg
     Route: 048
     Dates: start: 20020107

REACTIONS (3)
  - Rectal haemorrhage [Recovered/Resolved]
  - Diverticulum [Recovered/Resolved]
  - Adenoma benign [Recovered/Resolved]
